FAERS Safety Report 5286683-5 (Version None)
Quarter: 2007Q1

REPORT INFORMATION
  Report Type: 
  Country: None (occurrence: None)
  Receive Date: 20070116
  Receipt Date: 20061027
  Transmission Date: 20070707
  Serious: No
  Sender: FDA-Public Use
  Company Number: 2006SP003859

PATIENT
  Age: 66 Year
  Sex: Male

DRUGS (5)
  1. LUNESTA [Suspect]
     Dosage: 3 MG;ORAL
     Route: 048
  2. LEXAPRO [Suspect]
     Dosage: 20 MG;QD;ORAL
     Route: 048
  3. ADDERALL 10 [Concomitant]
  4. UROXATRAL [Concomitant]
  5. BUPROPION HCL [Concomitant]

REACTIONS (1)
  - HEPATIC ENZYME INCREASED [None]
